FAERS Safety Report 25210480 (Version 2)
Quarter: 2025Q2

REPORT INFORMATION
  Report Type: Spontaneous
  Country: US (occurrence: US)
  Receive Date: 20250417
  Receipt Date: 20250514
  Transmission Date: 20250717
  Serious: No
  Sender: PFIZER
  Company Number: US-PFIZER INC-PV202500044108

PATIENT
  Age: 73 Year
  Sex: Female

DRUGS (21)
  1. DEMEROL [Suspect]
     Active Substance: MEPERIDINE HYDROCHLORIDE
  2. LEVOTHYROXINE SODIUM [Concomitant]
     Active Substance: LEVOTHYROXINE SODIUM
  3. LEVOTHYROXINE [Concomitant]
     Active Substance: LEVOTHYROXINE
     Route: 048
  4. COZAAR [Concomitant]
     Active Substance: LOSARTAN POTASSIUM
  5. LOTEMAX [Concomitant]
     Active Substance: LOTEPREDNOL ETABONATE
  6. GONADOTROPHIN, CHORIONIC [Concomitant]
     Active Substance: GONADOTROPHIN, CHORIONIC
  7. PRILOSEC [Concomitant]
     Active Substance: OMEPRAZOLE MAGNESIUM
  8. OCREVUS [Concomitant]
     Active Substance: OCRELIZUMAB
  9. ASPIRIN [Concomitant]
     Active Substance: ASPIRIN
  10. COREG [Concomitant]
     Active Substance: CARVEDILOL
  11. CHOLESTYRAMINE [Concomitant]
     Active Substance: CHOLESTYRAMINE
  12. DUREZOL [Concomitant]
     Active Substance: DIFLUPREDNATE
  13. LOMOTIL [Concomitant]
     Active Substance: ATROPINE SULFATE\DIPHENOXYLATE HYDROCHLORIDE
  14. ALUMINUM HYDROXIDE\MAGNESIUM CARBONATE [Concomitant]
     Active Substance: ALUMINUM HYDROXIDE\MAGNESIUM CARBONATE
  15. NEURONTIN [Concomitant]
     Active Substance: GABAPENTIN
  16. XALATAN [Concomitant]
     Active Substance: LATANOPROST
  17. EMLA [Concomitant]
     Active Substance: LIDOCAINE\PRILOCAINE
  18. OMEPRAZOLE [Concomitant]
     Active Substance: OMEPRAZOLE
  19. REPATHA [Concomitant]
     Active Substance: EVOLOCUMAB
  20. VITAMIN E+C [ASCORBIC ACID;TOCOPHERYL ACETATE] [Concomitant]
  21. COSOPT [Concomitant]
     Active Substance: DORZOLAMIDE HYDROCHLORIDE\TIMOLOL MALEATE

REACTIONS (1)
  - Rash [Unknown]
